FAERS Safety Report 9313255 (Version 1)
Quarter: 2013Q2

REPORT INFORMATION
  Report Type: Spontaneous
  Country: US (occurrence: US)
  Receive Date: 20130528
  Receipt Date: 20130528
  Transmission Date: 20140414
  Serious: No
  Sender: FDA-Public Use
  Company Number: US-ABBOTT-13P-163-1064321-00

PATIENT
  Sex: Male
  Weight: 117.13 kg

DRUGS (3)
  1. ANDROGEL [Suspect]
     Indication: BLOOD TESTOSTERONE DECREASED
     Dosage: 2 PUMPS
     Route: 061
     Dates: start: 201209
  2. ANDROGEL [Suspect]
     Indication: BLOOD TESTOSTERONE DECREASED
     Route: 061
  3. IBUPROFEN [Concomitant]
     Indication: ARTHRALGIA

REACTIONS (4)
  - Gynaecomastia [Not Recovered/Not Resolved]
  - Breast pain [Not Recovered/Not Resolved]
  - Gynaecomastia [Not Recovered/Not Resolved]
  - Breast pain [Not Recovered/Not Resolved]
